FAERS Safety Report 8760759 (Version 5)
Quarter: 2012Q4

REPORT INFORMATION
  Report Type: Report from Study
  Country: FR (occurrence: FR)
  Receive Date: 20120830
  Receipt Date: 20121019
  Transmission Date: 20130627
  Serious: Yes (Death, Life-Threatening, Hospitalization, Other)
  Sender: FDA-Public Use
  Company Number: FR-CELGENEUS-056-21880-12082761

PATIENT
  Age: 69 Year
  Sex: Male
  Weight: 74 kg

DRUGS (8)
  1. REVLIMID [Suspect]
     Indication: MULTIPLE MYELOMA
     Dosage: 25 Milligram
     Route: 048
     Dates: start: 20111013, end: 20111117
  2. REVLIMID [Suspect]
     Dosage: 15 Milligram
     Route: 048
     Dates: start: 20111125, end: 20120713
  3. DEXAMETHASONE [Suspect]
     Indication: MULTIPLE MYELOMA
     Route: 048
     Dates: start: 20111013, end: 20120713
  4. KARDEGIC [Concomitant]
     Indication: ANTIPLATELET THERAPY
     Dosage: 75 Milligram
     Route: 048
  5. CLASTOBAN [Concomitant]
     Indication: OSTEOLYSIS
     Dosage: 1600 Milligram
     Route: 048
  6. IXPRIM [Concomitant]
     Indication: PAIN
     Dosage: 37.5/32.5 mg
     Route: 048
  7. TAZOCILLINE [Concomitant]
     Indication: BACTERIAL INFECTION
     Dosage: 16 Gram
     Route: 041
     Dates: start: 20120718, end: 20120721
  8. ASPIRIN [Concomitant]
     Indication: THROMBOSIS PROPHYLAXIS
     Route: 065

REACTIONS (3)
  - Colon cancer metastatic [Fatal]
  - Peritonitis [Recovered/Resolved]
  - Anaemia [Not Recovered/Not Resolved]
